FAERS Safety Report 17834511 (Version 1)
Quarter: 2020Q2

REPORT INFORMATION
  Report Type: Spontaneous
  Country: US (occurrence: US)
  Receive Date: 20200528
  Receipt Date: 20200528
  Transmission Date: 20200714
  Serious: No
  Sender: FDA-Public Use
  Company Number: US-PFIZER INC-2020210009

PATIENT
  Sex: Female

DRUGS (1)
  1. DAURISMO [Suspect]
     Active Substance: GLASDEGIB
     Dosage: UNK

REACTIONS (2)
  - Dysgeusia [Unknown]
  - Decreased appetite [Unknown]
